FAERS Safety Report 20977071 (Version 1)
Quarter: 2022Q2

REPORT INFORMATION
  Report Type: Spontaneous
  Country: CN (occurrence: CN)
  Receive Date: 20220617
  Receipt Date: 20220617
  Transmission Date: 20220720
  Serious: Yes (Hospitalization, Other)
  Sender: FDA-Public Use
  Company Number: CN-NAPPMUNDI-GBR-2022-0098880

PATIENT
  Age: 84 Year
  Sex: Male
  Weight: 70 kg

DRUGS (6)
  1. OXYCODONE HYDROCHLORIDE [Suspect]
     Active Substance: OXYCODONE HYDROCHLORIDE
     Indication: Analgesic therapy
     Dosage: 120 MILLIGRAM, Q12H
     Route: 048
     Dates: start: 20220525, end: 20220531
  2. OXYCODONE HYDROCHLORIDE [Suspect]
     Active Substance: OXYCODONE HYDROCHLORIDE
     Dosage: 80 MILLIGRAM, Q12H
     Route: 048
     Dates: start: 20220521, end: 20220525
  3. OXYCODONE HYDROCHLORIDE [Suspect]
     Active Substance: OXYCODONE HYDROCHLORIDE
     Dosage: 50 MILLIGRAM, Q12H
     Route: 048
     Dates: start: 20220518, end: 20220521
  4. OXYCODONE HYDROCHLORIDE [Suspect]
     Active Substance: OXYCODONE HYDROCHLORIDE
     Dosage: 40 MILLIGRAM, Q12H
     Route: 048
     Dates: start: 20220515, end: 20220518
  5. OXYCODONE HYDROCHLORIDE [Suspect]
     Active Substance: OXYCODONE HYDROCHLORIDE
     Dosage: 30 MILLIGRAM, Q12H
     Route: 048
     Dates: start: 20220514, end: 20220515
  6. OXYCODONE HYDROCHLORIDE [Suspect]
     Active Substance: OXYCODONE HYDROCHLORIDE
     Dosage: 20 MILLIGRAM, Q12H
     Route: 048

REACTIONS (9)
  - Depressed level of consciousness [Recovering/Resolving]
  - Unresponsive to stimuli [Recovering/Resolving]
  - Poor quality sleep [Unknown]
  - Decreased appetite [Unknown]
  - Hypopnoea [Recovering/Resolving]
  - Disorganised speech [Recovering/Resolving]
  - Muscle spasms [Recovering/Resolving]
  - Yawning [Recovering/Resolving]
  - Dysphoria [Recovering/Resolving]

NARRATIVE: CASE EVENT DATE: 20220514
